FAERS Safety Report 9992351 (Version 2)
Quarter: 2014Q2

REPORT INFORMATION
  Report Type: Spontaneous
  Country: US (occurrence: US)
  Receive Date: 20140310
  Receipt Date: 20140421
  Transmission Date: 20141212
  Serious: Yes (Hospitalization)
  Sender: FDA-Public Use
  Company Number: US-GLAXOSMITHKLINE-A1063094A

PATIENT
  Age: 77 Year
  Sex: Female

DRUGS (9)
  1. ADVAIR [Suspect]
     Indication: ASTHMA
     Dosage: 1PUFF TWICE PER DAY
     Route: 055
     Dates: start: 2007
  2. VERAPAMIL ER [Concomitant]
  3. LOSARTAN [Concomitant]
  4. COLCHICINE [Concomitant]
  5. ULORIC [Concomitant]
  6. PROAIR HFA [Concomitant]
  7. PREVACID [Concomitant]
  8. CORTICOSTEROIDS [Concomitant]
  9. NEBULIZER [Concomitant]

REACTIONS (6)
  - Respiratory tract infection [Recovered/Resolved]
  - Nocturnal dyspnoea [Recovered/Resolved]
  - Nasopharyngitis [Recovered/Resolved]
  - Cataract [Unknown]
  - Asthma [Recovered/Resolved]
  - Product quality issue [Unknown]
